FAERS Safety Report 7717859-2 (Version None)
Quarter: 2011Q3

REPORT INFORMATION
  Report Type: 
  Country: None (occurrence: None)
  Receive Date: 20110830
  Receipt Date: 20110825
  Transmission Date: 20111222
  Serious: Yes (Other)
  Sender: FDA-Public Use
  Company Number: US-SANOFI-AVENTIS-2011SA054898

PATIENT
  Age: 75 Year
  Sex: Female

DRUGS (8)
  1. COUMADIN [Concomitant]
     Dosage: ON TUESDAY AND THURSDAY
  2. LISINOPRIL [Suspect]
     Route: 065
  3. MULTAQ [Suspect]
     Indication: ATRIAL FIBRILLATION
     Route: 048
     Dates: start: 20110407
  4. COUMADIN [Concomitant]
     Dosage: ON MONDAY, WEDNESDAY AND FRIDAY
  5. ZOCOR [Concomitant]
  6. VITAMIN B-12 [Concomitant]
  7. ASPIRIN [Concomitant]
  8. METOPROLOL SUCCINATE [Suspect]
     Route: 065

REACTIONS (4)
  - ATRIAL FIBRILLATION [None]
  - DIZZINESS [None]
  - MUSCULAR WEAKNESS [None]
  - GAIT DISTURBANCE [None]
